FAERS Safety Report 5355129-0 (Version None)
Quarter: 2007Q2

REPORT INFORMATION
  Report Type: 
  Country: None (occurrence: None)
  Receive Date: 20070521
  Receipt Date: 20070102
  Transmission Date: 20071010
  Serious: Yes (Hospitalization)
  Sender: FDA-Public Use
  Company Number: 0609-676

PATIENT
  Age: 66 Year
  Sex: Female
  Weight: 68.9467 kg

DRUGS (4)
  1. DUONEB [Suspect]
     Indication: CHRONIC OBSTRUCTIVE PULMONARY DISEASE
     Dosage: 1 X4 PRN-INHALATION AS NEEDED
     Route: 055
  2. LIPITOR [Concomitant]
  3. SPIRIVA [Concomitant]
  4. ASPIRIN [Concomitant]

REACTIONS (1)
  - BRONCHOSPASM [None]
